FAERS Safety Report 8577368-8 (Version None)
Quarter: 2012Q3

REPORT INFORMATION
  Report Type: 
  Country: None (occurrence: None)
  Receive Date: 20120807
  Receipt Date: 20120801
  Transmission Date: 20120928
  Serious: Yes (Hospitalization)
  Sender: FDA-Public Use
  Company Number: FR-ABBOTT-12P-056-0963893-00

PATIENT
  Age: 58 Year
  Sex: Male

DRUGS (3)
  1. SOLIAN [Suspect]
     Indication: BIPOLAR DISORDER
     Route: 048
     Dates: start: 20110605
  2. DEPAKENE [Suspect]
     Indication: BIPOLAR DISORDER
     Route: 048
     Dates: start: 20120605, end: 20120611
  3. OXAZEPAM [Suspect]
     Indication: PRODUCT USED FOR UNKNOWN INDICATION
     Route: 048
     Dates: start: 20120605, end: 20120611

REACTIONS (1)
  - DEEP VEIN THROMBOSIS [None]
